FAERS Safety Report 6209152-4 (Version None)
Quarter: 2009Q2

REPORT INFORMATION
  Report Type: 
  Country: None (occurrence: None)
  Receive Date: 20090529
  Receipt Date: 20090519
  Transmission Date: 20091009
  Serious: Yes (Life-Threatening)
  Sender: FDA-Public Use
  Company Number: NO-JNJFOC-20090506262

PATIENT
  Sex: Female

DRUGS (5)
  1. REMICADE [Suspect]
     Route: 042
  2. REMICADE [Suspect]
     Indication: RHEUMATOID ARTHRITIS
     Route: 042
  3. CALCIUM AND VITAMIN D3 [Concomitant]
     Indication: OSTEOPOROSIS
     Dosage: 500 MG/400 IE
     Route: 048
  4. PREDNISOLONE [Concomitant]
     Indication: RHEUMATOID ARTHRITIS
     Route: 048
  5. OPTINATE SEPTIMUM [Concomitant]
     Indication: OSTEOPOROSIS
     Route: 048

REACTIONS (6)
  - COLD SWEAT [None]
  - INFECTION [None]
  - INFUSION RELATED REACTION [None]
  - MALAISE [None]
  - NAUSEA [None]
  - VISION BLURRED [None]
